FAERS Safety Report 8835231 (Version 1)
Quarter: 2012Q4

REPORT INFORMATION
  Report Type: 
  Country: PH (occurrence: PH)
  Receive Date: 20121011
  Receipt Date: 20121011
  Transmission Date: 20130627
  Serious: Yes (Death, Hospitalization)
  Sender: FDA-Public Use
  Company Number: PH-BAXTER-2012BAX019269

PATIENT
  Sex: Male

DRUGS (2)
  1. DIANEAL PD2 WITH 1.5% DEXTROSE [Suspect]
     Indication: CAPD
     Route: 033
     Dates: start: 20120830
  2. DIANEAL PD2 WITH 2.5% DEXTROSE [Suspect]
     Indication: CAPD
     Route: 033
     Dates: start: 20120830

REACTIONS (8)
  - Ventricular arrhythmia [Fatal]
  - Ventricular tachycardia [Fatal]
  - Ventricular fibrillation [Fatal]
  - Cardio-respiratory arrest [Unknown]
  - Congestive cardiomyopathy [Unknown]
  - Renal ischaemia [Unknown]
  - Cardiac failure congestive [Unknown]
  - Renal failure chronic [Unknown]
